FAERS Safety Report 20674833 (Version 1)
Quarter: 2022Q2

REPORT INFORMATION
  Report Type: Spontaneous
  Country: US (occurrence: None)
  Receive Date: 20220404
  Receipt Date: 20220404
  Transmission Date: 20220720
  Serious: Yes (Other)
  Sender: FDA-Public Use
  Company Number: None

PATIENT
  Sex: Female
  Weight: 85.5 kg

DRUGS (1)
  1. BUPRENORPHINE\NALOXONE [Suspect]
     Active Substance: BUPRENORPHINE\NALOXONE
     Indication: Dependence
     Dosage: OTHER QUANTITY : 30 TABLET(S);?FREQUENCY : 3 TIMES A DAY;?
     Route: 060
     Dates: start: 20111011, end: 20220404

REACTIONS (3)
  - Dental caries [None]
  - Tooth fracture [None]
  - Tooth loss [None]
